FAERS Safety Report 13837604 (Version 4)
Quarter: 2017Q3

REPORT INFORMATION
  Report Type: Report from Study
  Country: None (occurrence: US)
  Receive Date: 20170805
  Receipt Date: 20170818
  Transmission Date: 20171127
  Serious: Yes (Hospitalization, Other)
  Sender: FDA-Public Use
  Company Number: US-ABBVIE-17K-163-2062707-00

PATIENT
  Age: 68 Year
  Sex: Male

DRUGS (1)
  1. DUOPA [Suspect]
     Active Substance: CARBIDOPA\LEVODOPA
     Indication: PARKINSON^S DISEASE
     Route: 050
     Dates: start: 20170630

REACTIONS (9)
  - Seizure [Unknown]
  - Device connection issue [Unknown]
  - Tonic clonic movements [Unknown]
  - Bedridden [Unknown]
  - Muscle atrophy [Not Recovered/Not Resolved]
  - Malaise [Unknown]
  - Adverse event [Unknown]
  - Speech disorder [Unknown]
  - Blood albumin decreased [Not Recovered/Not Resolved]

NARRATIVE: CASE EVENT DATE: 2017
